FAERS Safety Report 23297106 (Version 1)
Quarter: 2023Q4

REPORT INFORMATION
  Report Type: Spontaneous
  Country: GB (occurrence: GB)
  Receive Date: 20231214
  Receipt Date: 20231214
  Transmission Date: 20240110
  Serious: Yes (Hospitalization, Other)
  Sender: FDA-Public Use
  Company Number: GB-LDELTA-NLLD0042181

PATIENT
  Age: 47 Year
  Sex: Male

DRUGS (9)
  1. LANSOPRAZOLE [Suspect]
     Active Substance: LANSOPRAZOLE
     Indication: Gastrooesophageal reflux disease
     Dosage: 30 MILLIGRAM, QD
     Route: 048
  2. LANSOPRAZOLE [Suspect]
     Active Substance: LANSOPRAZOLE
     Dosage: UNK (50X - OVERDOSE)
     Route: 065
  3. CLOZAPINE [Suspect]
     Active Substance: CLOZAPINE
     Indication: Schizophrenia
     Dosage: 400 MILLIGRAM, QD
     Route: 048
     Dates: start: 20211020
  4. CLOZAPINE [Suspect]
     Active Substance: CLOZAPINE
     Dosage: 16400 MILLIGRAM (OVERDOSE) (164 X 100MG TABLETS)
     Route: 065
  5. FLUOXETINE [Concomitant]
     Active Substance: FLUOXETINE HYDROCHLORIDE
     Indication: Depressed mood
     Dosage: 40 MILLIGRAM, QD
     Route: 048
  6. SCOPOLAMINE HYDROBROMIDE [Concomitant]
     Active Substance: SCOPOLAMINE HYDROBROMIDE
     Indication: Salivary hypersecretion
     Dosage: 900 MICROGRAM, QD
     Route: 048
  7. PREGABALIN [Concomitant]
     Active Substance: PREGABALIN
     Indication: Coccydynia
     Dosage: 150 MILLIGRAM, QD
     Route: 048
  8. ALBUTEROL [Concomitant]
     Active Substance: ALBUTEROL
     Dosage: UNK, QD (UP TO 8 PUFFS PER DAY) (ORALLY (INHALATION))
     Route: 055
  9. VALPROATE SODIUM [Concomitant]
     Active Substance: VALPROATE SODIUM
     Indication: Epilepsy
     Dosage: 1000 MILLIGRAM, QD
     Route: 048

REACTIONS (10)
  - Respiratory distress [Recovering/Resolving]
  - Mental status changes [Recovering/Resolving]
  - Antipsychotic drug level increased [Recovering/Resolving]
  - Tachycardia [Recovering/Resolving]
  - Sedation [Recovering/Resolving]
  - Thinking abnormal [Recovering/Resolving]
  - Salivary hypersecretion [Unknown]
  - Hypotension [Recovering/Resolving]
  - Confusional state [Recovering/Resolving]
  - Overdose [Recovering/Resolving]

NARRATIVE: CASE EVENT DATE: 20230929
